FAERS Safety Report 8197810-4 (Version None)
Quarter: 2012Q1

REPORT INFORMATION
  Report Type: 
  Country: None (occurrence: None)
  Receive Date: 20120309
  Receipt Date: 20120302
  Transmission Date: 20120608
  Serious: Yes (Death, Hospitalization)
  Sender: FDA-Public Use
  Company Number: FR-BRISTOL-MYERS SQUIBB COMPANY-16431454

PATIENT
  Age: 88 Year
  Sex: Male

DRUGS (10)
  1. ACETAMINOPHEN [Interacting]
     Dates: start: 20111217
  2. LASIX [Concomitant]
  3. COUMADIN [Suspect]
     Route: 048
     Dates: end: 20120103
  4. TRAMADOL HCL [Interacting]
     Route: 048
     Dates: start: 20111217, end: 20120103
  5. RAMIPRIL [Concomitant]
  6. METFORMIN HCL [Concomitant]
  7. DIGOXIN [Concomitant]
  8. LYRICA [Concomitant]
  9. RAMIPRIL [Concomitant]
  10. SPIRONOLACTONE [Concomitant]

REACTIONS (10)
  - ISCHAEMIA [None]
  - INTERNATIONAL NORMALISED RATIO INCREASED [None]
  - DISSEMINATED INTRAVASCULAR COAGULATION [None]
  - ANAEMIA [None]
  - MULTI-ORGAN FAILURE [None]
  - PERITONEAL HAEMORRHAGE [None]
  - THROMBOCYTOPENIA [None]
  - DRUG INTERACTION [None]
  - HYPERKALAEMIA [None]
  - ROAD TRAFFIC ACCIDENT [None]
